FAERS Safety Report 7921167-4 (Version None)
Quarter: 2011Q4

REPORT INFORMATION
  Report Type: 
  Country: None (occurrence: None)
  Receive Date: 20111117
  Receipt Date: 20111114
  Transmission Date: 20120403
  Serious: Yes (Other)
  Sender: FDA-Public Use
  Company Number: US-BAYER-2011-087156

PATIENT
  Sex: Female

DRUGS (1)
  1. MIRENA [Suspect]
     Dosage: 20 MCG/24HR, CONT
     Route: 015
     Dates: end: 20111109

REACTIONS (4)
  - MENORRHAGIA [None]
  - HYPOMENORRHOEA [None]
  - MUSCLE SPASMS [None]
  - VAGINAL HAEMORRHAGE [None]
